FAERS Safety Report 12139904 (Version 1)
Quarter: 2016Q1

REPORT INFORMATION
  Report Type: Spontaneous
  Country: KR (occurrence: KR)
  Receive Date: 20160303
  Receipt Date: 20160303
  Transmission Date: 20160526
  Serious: Yes (Death, Hospitalization)
  Sender: FDA-Public Use
  Company Number: KR-AMGEN-KORCT2016026047

PATIENT
  Age: 77 Year
  Sex: Male
  Weight: 68.4 kg

DRUGS (65)
  1. G-LASTA [Suspect]
     Active Substance: PEGFILGRASTIM
     Dosage: 6 MG, Q3WK
     Route: 058
     Dates: start: 20150320
  2. RITUXIMAB [Concomitant]
     Active Substance: RITUXIMAB
     Indication: NON-HODGKIN^S LYMPHOMA
     Dosage: 648 MG, UNK
     Route: 042
     Dates: start: 20150205, end: 20150205
  3. RITUXIMAB [Concomitant]
     Active Substance: RITUXIMAB
     Dosage: 607 MG, UNK
     Route: 042
     Dates: start: 20150319, end: 20150319
  4. CYCLOPHOSPHAMIDE. [Concomitant]
     Active Substance: CYCLOPHOSPHAMIDE
     Dosage: 605 MG, UNK
     Route: 042
     Dates: start: 20150319, end: 20150319
  5. TRAMADOL HCL [Concomitant]
     Active Substance: TRAMADOL HYDROCHLORIDE
     Dosage: 50 MG, UNK
     Route: 042
     Dates: start: 20150215, end: 20150412
  6. NESP [Concomitant]
     Active Substance: DARBEPOETIN ALFA
     Dosage: 360 MG, UNK
     Route: 058
     Dates: start: 20150225, end: 20150428
  7. SYNACTHEN                          /00055703/ [Concomitant]
     Dosage: 0.25 MG, UNK
     Route: 042
     Dates: start: 20150420, end: 20150420
  8. CITOPCIN                           /00697202/ [Concomitant]
     Dosage: 400 MG, UNK
     Route: 042
     Dates: start: 20150313, end: 20150402
  9. CARDIOXANE [Concomitant]
     Active Substance: DEXRAZOXANE HYDROCHLORIDE
     Dosage: 500 MG, UNK
     Route: 042
     Dates: start: 20150319, end: 20150428
  10. ATROVENT UDV [Concomitant]
     Active Substance: IPRATROPIUM BROMIDE
     Dosage: 1.5 ML, UNK
     Route: 055
     Dates: start: 20150208, end: 20150216
  11. ACTIFED [Concomitant]
     Active Substance: PSEUDOEPHEDRINE HYDROCHLORIDE\TRIPROLIDINE HYDROCHLORIDE
     Dosage: 120 MG, UNK
     Route: 048
     Dates: start: 20150401, end: 20150423
  12. G-LASTA [Suspect]
     Active Substance: PEGFILGRASTIM
     Indication: FEBRILE NEUTROPENIA
     Dosage: 6 MG, Q3WK
     Route: 058
     Dates: start: 20150206
  13. G-LASTA [Suspect]
     Active Substance: PEGFILGRASTIM
     Dosage: 6 MG, Q3WK
     Route: 058
     Dates: start: 20150227
  14. DOXORUBICIN [Concomitant]
     Active Substance: DOXORUBICIN
     Dosage: 41 MG, UNK
     Route: 042
     Dates: start: 20150428, end: 20150428
  15. TANTUM                             /00052302/ [Concomitant]
     Dosage: 100 ML, UNK
     Route: 065
     Dates: start: 20150220, end: 20150304
  16. GLUCOPHAGE [Concomitant]
     Active Substance: METFORMIN HYDROCHLORIDE
     Dosage: 1000 MG, UNK
     Route: 048
     Dates: start: 20150211, end: 20150213
  17. VINCRISTINE [Concomitant]
     Active Substance: VINCRISTINE
     Indication: NON-HODGKIN^S LYMPHOMA
     Dosage: 1.21 MG, UNK
     Route: 042
     Dates: start: 20150205, end: 20150205
  18. VINCRISTINE [Concomitant]
     Active Substance: VINCRISTINE
     Dosage: 1.13 MG, UNK
     Route: 042
     Dates: start: 20150319, end: 20150319
  19. PREDNISOLONE. [Concomitant]
     Active Substance: PREDNISOLONE
     Dosage: 100 MG, UNK
     Route: 048
     Dates: start: 20150319, end: 20150320
  20. TARASYN [Concomitant]
     Dosage: 30 MG, UNK
     Route: 042
     Dates: start: 20150412, end: 20150412
  21. PIPRINHYDRINATE [Concomitant]
     Dosage: 3 MG, UNK
     Route: 042
     Dates: start: 20150206, end: 20150428
  22. LASIX [Concomitant]
     Active Substance: FUROSEMIDE
     Dosage: 20 MG, UNK
     Route: 042
     Dates: start: 20150209
  23. MACPERAN [Concomitant]
     Dosage: 15 MG, UNK
     Route: 048
     Dates: start: 20150206, end: 20150429
  24. ALFUZON XL [Concomitant]
     Dosage: 10 MG, UNK
     Route: 048
     Dates: start: 20150303, end: 20150320
  25. CIPROBAY                           /00697201/ [Concomitant]
     Active Substance: CIPROFLOXACIN
     Dosage: 250 MG, UNK
     Route: 048
     Dates: start: 20150228, end: 20150303
  26. RITUXIMAB [Concomitant]
     Active Substance: RITUXIMAB
     Dosage: 615 MG, UNK
     Route: 042
     Dates: start: 20150428, end: 20150428
  27. MAXPIME [Concomitant]
     Dosage: 6 G, UNK
     Route: 042
     Dates: start: 20150217, end: 20150225
  28. KALIMATE [Concomitant]
     Active Substance: CALCIUM POLYSTYRENE SULFONATE
     Dosage: 5 G, UNK
     Route: 048
     Dates: start: 20150209, end: 20150211
  29. HARNAL [Concomitant]
     Active Substance: TAMSULOSIN HYDROCHLORIDE
     Dosage: 0.2 MG, UNK
     Route: 048
     Dates: start: 20150228, end: 20150302
  30. CYCLOPHOSPHAMIDE. [Concomitant]
     Active Substance: CYCLOPHOSPHAMIDE
     Indication: NON-HODGKIN^S LYMPHOMA
     Dosage: 650 MG, UNK
     Route: 042
     Dates: start: 20150205, end: 20150205
  31. CYCLOPHOSPHAMIDE. [Concomitant]
     Active Substance: CYCLOPHOSPHAMIDE
     Dosage: 615 MG, UNK
     Route: 042
     Dates: start: 20150428, end: 20150428
  32. PREDNISOLONE. [Concomitant]
     Active Substance: PREDNISOLONE
     Dosage: 100 MG, UNK
     Route: 048
     Dates: start: 20150226, end: 20150227
  33. HUMULIN R [Concomitant]
     Active Substance: INSULIN HUMAN
     Dosage: 1 ML, UNK
     Route: 058
     Dates: start: 20150207, end: 20150209
  34. DEXAMETHASONE. [Concomitant]
     Active Substance: DEXAMETHASONE
     Dosage: 5 MG, UNK
     Route: 042
     Dates: start: 20150226, end: 20150428
  35. TYLENOL ER [Concomitant]
     Active Substance: ACETAMINOPHEN
     Dosage: 650 MG, UNK
     Route: 048
     Dates: start: 20150226, end: 20150428
  36. MUCOMYST                           /00082801/ [Concomitant]
     Dosage: 4 ML, UNK
     Route: 042
     Dates: start: 20150207, end: 20150216
  37. CETIZAL [Concomitant]
     Dosage: 5 MG, UNK
     Route: 048
     Dates: start: 20150414, end: 20150422
  38. RITUXIMAB [Concomitant]
     Active Substance: RITUXIMAB
     Dosage: 577 MG, UNK
     Route: 042
     Dates: start: 20150226, end: 20150226
  39. DOXORUBICIN [Concomitant]
     Active Substance: DOXORUBICIN
     Indication: NON-HODGKIN^S LYMPHOMA
     Dosage: 43 MG, UNK
     Route: 042
     Dates: start: 20150205, end: 20150205
  40. DOXORUBICIN [Concomitant]
     Active Substance: DOXORUBICIN
     Dosage: 38 MG, UNK
     Route: 042
     Dates: start: 20150226, end: 20150226
  41. DOXORUBICIN [Concomitant]
     Active Substance: DOXORUBICIN
     Dosage: 40 MG, UNK
     Route: 042
     Dates: start: 20150319, end: 20150319
  42. VINCRISTINE [Concomitant]
     Active Substance: VINCRISTINE
     Dosage: 1.14 MG, UNK
     Route: 042
     Dates: start: 20150428, end: 20150428
  43. PREDNISOLONE. [Concomitant]
     Active Substance: PREDNISOLONE
     Dosage: 100 MG, UNK
     Route: 048
     Dates: start: 20150428, end: 20150429
  44. METHYSOL [Concomitant]
     Dosage: 125 MG, UNK
     Route: 042
     Dates: start: 20150421, end: 20150427
  45. MAGMIL [Concomitant]
     Active Substance: MAGNESIUM HYDROXIDE
     Dosage: 750 MG, UNK
     Route: 048
     Dates: start: 20150210, end: 20150420
  46. EMEND [Concomitant]
     Active Substance: APREPITANT
     Dosage: 80 MG, UNK
     Route: 048
     Dates: start: 20150207, end: 20150428
  47. PARAMACET [Concomitant]
     Active Substance: ACETAMINOPHEN\TRAMADOL
     Dosage: 325 MG, UNK
     Route: 048
     Dates: start: 20150224, end: 20150414
  48. CYCLOPHOSPHAMIDE. [Concomitant]
     Active Substance: CYCLOPHOSPHAMIDE
     Dosage: 575 MG, UNK
     Route: 042
     Dates: start: 20150226, end: 20150226
  49. VINCRISTINE [Concomitant]
     Active Substance: VINCRISTINE
     Dosage: 1.07 MG, UNK
     Route: 042
     Dates: start: 20150226, end: 20150226
  50. SMOFKABIVEN [Concomitant]
     Active Substance: UNSPECIFIED INGREDIENT
     Dosage: 1477 ML, UNK
     Route: 042
     Dates: start: 20150207, end: 20150527
  51. NORMAL SALINE [Concomitant]
     Active Substance: SODIUM CHLORIDE
     Dosage: 1000 ML, UNK
     Route: 042
     Dates: start: 20150226, end: 20150429
  52. LASIX [Concomitant]
     Active Substance: FUROSEMIDE
     Dosage: 40 MG, UNK
     Route: 048
     Dates: start: 20150212, end: 20150406
  53. MORPHINE SULFATE. [Concomitant]
     Active Substance: MORPHINE SULFATE
     Dosage: 1 MG, UNK
     Route: 042
     Dates: start: 20150413, end: 20150413
  54. DEXTROSE. [Concomitant]
     Active Substance: DEXTROSE
     Dosage: 200 ML, UNK
     Route: 042
     Dates: start: 20150226, end: 20150428
  55. COLISTIMETHATE [Concomitant]
     Active Substance: COLISTIMETHATE SODIUM
     Dosage: 75 MG, UNK
     Route: 042
     Dates: start: 20150402, end: 20150417
  56. SEROQUEL [Concomitant]
     Active Substance: QUETIAPINE FUMARATE
     Dosage: 12.5 MG, UNK
     Route: 048
     Dates: start: 20150417, end: 20150423
  57. NEOMEDICOUGH [Concomitant]
     Dosage: 10 MG, UNK
     Route: 048
     Dates: start: 20150206, end: 20150422
  58. DUPHALAC EASY [Concomitant]
     Dosage: 45 ML, UNK
     Route: 048
     Dates: start: 20150420, end: 20150429
  59. CURAN [Concomitant]
     Dosage: 150 MG, UNK
     Route: 048
     Dates: start: 20150207, end: 20150430
  60. G-LASTA [Suspect]
     Active Substance: PEGFILGRASTIM
     Dosage: 6 MG, UNK
     Route: 058
     Dates: start: 20150429
  61. PREDNISOLONE. [Concomitant]
     Active Substance: PREDNISOLONE
     Indication: NON-HODGKIN^S LYMPHOMA
     Dosage: 100 MG, UNK
     Route: 048
     Dates: start: 20150205, end: 20150206
  62. SANCUSO [Concomitant]
     Active Substance: GRANISETRON
     Dosage: 34.3 MG, UNK
     Route: 065
     Dates: start: 20150225, end: 20150318
  63. MEGESTROL ES [Concomitant]
     Dosage: 5 ML, UNK
     Route: 048
     Dates: start: 20150206, end: 20150429
  64. DICETEL [Concomitant]
     Active Substance: PINAVERIUM BROMIDE
     Dosage: 50 MG, UNK
     Route: 048
     Dates: start: 20150414, end: 20150430
  65. CETRAXAL PLUS [Concomitant]
     Dosage: 10 ML, UNK
     Route: 061
     Dates: start: 20150223, end: 20150225

REACTIONS (2)
  - Dyspnoea [Fatal]
  - Asthenia [Fatal]

NARRATIVE: CASE EVENT DATE: 20150506
